FAERS Safety Report 25959501 (Version 1)
Quarter: 2025Q4

REPORT INFORMATION
  Report Type: Spontaneous
  Country: US (occurrence: US)
  Receive Date: 20251026
  Receipt Date: 20251026
  Transmission Date: 20260118
  Serious: No
  Sender: BOEHRINGER INGELHEIM
  Company Number: US-Komodo Health-a23aa00000B3kROAAZ

PATIENT
  Age: 55 Year
  Sex: Male

DRUGS (1)
  1. JARDIANCE [Suspect]
     Active Substance: EMPAGLIFLOZIN
     Indication: Type 2 diabetes mellitus
     Dosage: 25MG

REACTIONS (4)
  - Nausea [Unknown]
  - Retching [Unknown]
  - Abdominal pain upper [Unknown]
  - Perineal rash [Not Recovered/Not Resolved]

NARRATIVE: CASE EVENT DATE: 20250101
